FAERS Safety Report 11104977 (Version 4)
Quarter: 2015Q4

REPORT INFORMATION
  Report Type: Report from Study
  Country: JP (occurrence: JP)
  Receive Date: 20150511
  Receipt Date: 20151103
  Transmission Date: 20160304
  Serious: Yes (Death, Hospitalization)
  Sender: FDA-Public Use
  Company Number: JP-EISAI MEDICAL RESEARCH-EC-2015-006661

PATIENT
  Age: 67 Year
  Sex: Female
  Weight: 47 kg

DRUGS (5)
  1. HALAVEN [Suspect]
     Active Substance: ERIBULIN MESYLATE
     Indication: BREAST CANCER RECURRENT
     Route: 041
     Dates: start: 20140903, end: 20141015
  2. GRANISETRON [Concomitant]
     Active Substance: GRANISETRON
  3. LYRICA [Concomitant]
     Active Substance: PREGABALIN
  4. HALAVEN [Suspect]
     Active Substance: ERIBULIN MESYLATE
     Route: 041
     Dates: start: 20141022, end: 20150507
  5. DECADRON [Concomitant]
     Active Substance: DEXAMETHASONE

REACTIONS (4)
  - Neutropenia [Recovered/Resolved]
  - Malignant neoplasm progression [Fatal]
  - Pyrexia [Recovering/Resolving]
  - Leukopenia [Recovered/Resolved]

NARRATIVE: CASE EVENT DATE: 20140910
